FAERS Safety Report 11693391 (Version 4)
Quarter: 2016Q1

REPORT INFORMATION
  Report Type: Spontaneous
  Country: CZ (occurrence: CZ)
  Receive Date: 20151103
  Receipt Date: 20160315
  Transmission Date: 20160525
  Serious: Yes (Hospitalization, Other)
  Sender: FDA-Public Use
  Company Number: CZ-PFIZER INC-2015365702

PATIENT
  Age: 90 Year
  Sex: Male

DRUGS (2)
  1. NEURONTIN [Suspect]
     Active Substance: GABAPENTIN
     Indication: PAIN
     Dosage: UNK
     Dates: start: 201508, end: 20151027
  2. FINASTERID [Concomitant]
     Dosage: UNK

REACTIONS (2)
  - Tachycardia [Unknown]
  - Oesophageal food impaction [Recovered/Resolved]

NARRATIVE: CASE EVENT DATE: 20150902
